FAERS Safety Report 19156712 (Version 1)
Quarter: 2021Q2

REPORT INFORMATION
  Report Type: Report from Study
  Country: FR (occurrence: FR)
  Receive Date: 20210420
  Receipt Date: 20210420
  Transmission Date: 20210717
  Serious: Yes (Life-Threatening)
  Sender: FDA-Public Use
  Company Number: FR-ROCHE-2813352

PATIENT
  Age: 68 Year
  Sex: Female

DRUGS (14)
  1. IBRUTINIB [Suspect]
     Active Substance: IBRUTINIB
     Indication: MANTLE CELL LYMPHOMA
     Dosage: FROM CYCLE 1 TO CYCLE 23
     Route: 048
     Dates: start: 20190214, end: 20201216
  2. IBRUTINIB [Suspect]
     Active Substance: IBRUTINIB
     Route: 048
     Dates: start: 202012
  3. GLICLAZIDE [Concomitant]
     Active Substance: GLICLAZIDE
  4. BENAZEPRIL [Concomitant]
     Active Substance: BENAZEPRIL HYDROCHLORIDE
  5. XARELTO [Concomitant]
     Active Substance: RIVAROXABAN
  6. OBINUTUZUMAB. [Suspect]
     Active Substance: OBINUTUZUMAB
     Indication: MANTLE CELL LYMPHOMA
     Dosage: 1 TIME(S) EVERY CYCLICAL / CYCLE 1: 100MG AT D1 AND 900MG AT D2; 1000MG AT D8 AND D15
     Route: 042
     Dates: start: 20190214, end: 20190227
  7. VENETOCLAX. [Suspect]
     Active Substance: VENETOCLAX
     Dosage: FROM CYCLE 2 TO CYCLE 23
     Route: 048
     Dates: start: 20200410, end: 20201216
  8. VENETOCLAX. [Suspect]
     Active Substance: VENETOCLAX
     Indication: MANTLE CELL LYMPHOMA
     Dosage: CYCLE 1BIS, D1 TO D7
     Route: 048
     Dates: start: 20190313, end: 20190319
  9. VENETOCLAX. [Suspect]
     Active Substance: VENETOCLAX
     Dosage: CYCLE 1BIS, D8 TO D14
     Route: 048
     Dates: start: 20200320, end: 20200326
  10. VENETOCLAX. [Suspect]
     Active Substance: VENETOCLAX
     Dosage: CYCLE 1BIS, D15 TO D21
     Route: 048
     Dates: start: 20200327, end: 20200402
  11. VENETOCLAX. [Suspect]
     Active Substance: VENETOCLAX
     Dosage: CYCLE 1BIS, D22 TO D28
     Route: 048
     Dates: start: 20200403, end: 20200409
  12. SPIRONOLACTONE. [Concomitant]
     Active Substance: SPIRONOLACTONE
  13. BISOPROLOL [Concomitant]
     Active Substance: BISOPROLOL
  14. OBINUTUZUMAB. [Suspect]
     Active Substance: OBINUTUZUMAB
     Dosage: 1 TIME(S) EVERY CYCLE 1BIS TO CYCLE 6, D1 OF EACH CYCLE; FROM CYCLE 8 TO CYCLE 22, D1 EVERY 2 CYCLES
     Route: 042
     Dates: start: 20190313, end: 20201021

REACTIONS (1)
  - Cardiac failure acute [Not Recovered/Not Resolved]

NARRATIVE: CASE EVENT DATE: 20210415
